FAERS Safety Report 6572264-X (Version None)
Quarter: 2010Q1

REPORT INFORMATION
  Report Type: 
  Country: None (occurrence: None)
  Receive Date: 20100201
  Receipt Date: 20100127
  Transmission Date: 20100710
  Serious: Yes (Other)
  Sender: FDA-Public Use
  Company Number: 1000006862

PATIENT
  Age: 47 Year
  Sex: Female

DRUGS (12)
  1. CELEXA [Suspect]
     Indication: DEPRESSION
     Dates: end: 20090401
  2. REBIF [Suspect]
     Indication: MULTIPLE SCLEROSIS
     Dosage: (44 MCG,3 IN 1 WK) , SUBCUTANEOUS
     Route: 058
     Dates: start: 20090123, end: 20090413
  3. GABAPENTIN [Suspect]
     Indication: PAIN
     Dates: end: 20090401
  4. KLONOPIN [Suspect]
     Indication: ANXIETY
     Dates: end: 20090401
  5. KLONOPIN [Suspect]
     Indication: SLEEP DISORDER
     Dates: end: 20090401
  6. CYTOXAN [Suspect]
     Indication: MULTIPLE SCLEROSIS
     Dates: end: 20090401
  7. ACYCLOVIR [Concomitant]
  8. VITAMIN D [Concomitant]
  9. FATTY ACIDS [Concomitant]
  10. SOLU-MEDROL [Concomitant]
  11. MOTRIN [Concomitant]
  12. TYLENOL-500 [Concomitant]

REACTIONS (4)
  - AUTOIMMUNE HEPATITIS [None]
  - HEPATITIS [None]
  - HYPOAESTHESIA [None]
  - LIVER INJURY [None]
